FAERS Safety Report 14818461 (Version 2)
Quarter: 2018Q3

REPORT INFORMATION
  Report Type: Spontaneous
  Country: HR (occurrence: HR)
  Receive Date: 20180427
  Receipt Date: 20180711
  Transmission Date: 20181010
  Serious: Yes (Hospitalization)
  Sender: FDA-Public Use
  Company Number: HR-ROCHE-2114871

PATIENT
  Age: 4 Decade
  Sex: Female

DRUGS (11)
  1. DIAZEPAM. [Suspect]
     Active Substance: DIAZEPAM
     Indication: SCHIZOAFFECTIVE DISORDER
     Dosage: DOSAGE FORM: UNSPECIFIED, 5,5,10 MG
     Route: 065
  2. RISPOLEPT [Suspect]
     Active Substance: RISPERIDONE
     Indication: SCHIZOAFFECTIVE DISORDER
     Route: 030
     Dates: start: 201306, end: 201401
  3. PROMAZINE [Suspect]
     Active Substance: PROMAZINE
     Indication: SCHIZOAFFECTIVE DISORDER
     Dosage: DOSAGE FORM: UNSPECIFIED, 25,25, 50 MG
     Route: 065
  4. CLOZAPINE. [Suspect]
     Active Substance: CLOZAPINE
     Indication: SCHIZOAFFECTIVE DISORDER
     Dosage: DOSAGE FORM: UNSPECIFIED, 25, 0, 50 MG
     Route: 065
  5. CLOZAPINE. [Suspect]
     Active Substance: CLOZAPINE
     Indication: SCHIZOAFFECTIVE DISORDER
     Dosage: DOSAGE FORM: UNSPECIFIED, 0, 0, 25 MG
     Route: 065
  6. BIPERIDEN [Suspect]
     Active Substance: BIPERIDEN
     Indication: SCHIZOAFFECTIVE DISORDER
     Route: 065
  7. RISPERIDONE. [Suspect]
     Active Substance: RISPERIDONE
     Indication: SCHIZOAFFECTIVE DISORDER
     Route: 048
  8. DIAZEPAM. [Suspect]
     Active Substance: DIAZEPAM
     Indication: SCHIZOAFFECTIVE DISORDER
     Dosage: DOSAGE FORM: UNSPECIFIED
     Route: 065
  9. PROMAZINE [Suspect]
     Active Substance: PROMAZINE
     Indication: SCHIZOAFFECTIVE DISORDER
     Dosage: DOSAGE FORM: UNSPECIFIED, 25,25,100 MG
     Route: 065
  10. ZOLPIDEM [Suspect]
     Active Substance: ZOLPIDEM\ZOLPIDEM TARTRATE
     Indication: SCHIZOAFFECTIVE DISORDER
     Dosage: DOSAGE FORM: UNSPECIFIED
     Route: 065
  11. RISPERIDONE. [Suspect]
     Active Substance: RISPERIDONE
     Indication: SCHIZOAFFECTIVE DISORDER
     Route: 048

REACTIONS (1)
  - Psychotic disorder [Recovered/Resolved]

NARRATIVE: CASE EVENT DATE: 201312
